FAERS Safety Report 9414487 (Version 3)
Quarter: 2013Q3

REPORT INFORMATION
  Report Type: Spontaneous
  Country: JP (occurrence: JP)
  Receive Date: 20130723
  Receipt Date: 20130820
  Transmission Date: 20140515
  Serious: Yes (Death, Other)
  Sender: FDA-Public Use
  Company Number: JP-009507513-1307JPN008819

PATIENT
  Age: 87 Year
  Sex: Female
  Weight: 43 kg

DRUGS (16)
  1. PEPCID [Suspect]
     Indication: GASTRITIS
     Dosage: 20 MG, QD
     Route: 048
     Dates: start: 20120516, end: 20120627
  2. LOXONIN [Suspect]
     Indication: PEMPHIGOID
     Dosage: 60 MG, PRN
     Route: 048
     Dates: start: 20120522, end: 201206
  3. LOXONIN [Suspect]
     Indication: TOOTHACHE
  4. LOXONIN [Suspect]
     Indication: PAIN
  5. LOXONIN [Suspect]
     Indication: SKIN EROSION
  6. MINOMYCIN [Concomitant]
     Indication: PEMPHIGOID
     Dosage: 100 MG, BID
     Route: 048
     Dates: start: 20120509, end: 20120620
  7. PREDONINE [Concomitant]
     Indication: PEMPHIGOID
     Dosage: 25 MG, QD
     Dates: start: 20120516, end: 20120627
  8. PREDONINE [Concomitant]
     Dosage: 10 MG, UNK
     Dates: start: 20120611
  9. ALLEGRA [Concomitant]
     Indication: PEMPHIGOID
     Dosage: 60 MG, BID
     Route: 048
     Dates: start: 20120509, end: 20120620
  10. SEDIEL [Concomitant]
     Indication: PRURITUS
     Dosage: 10 MG, UID
     Dates: start: 20120516, end: 20120620
  11. SEDIEL [Concomitant]
     Indication: PEMPHIGOID
  12. MUCOSTA [Concomitant]
     Indication: PAIN OF SKIN
     Dosage: 100 MG, PRN
     Route: 048
     Dates: start: 20120522, end: 201206
  13. MUCOSTA [Concomitant]
     Indication: SKIN EROSION
  14. MUCOSTA [Concomitant]
     Indication: SKIN ULCER
  15. MUCOSTA [Concomitant]
     Indication: PEMPHIGOID
  16. MUCOSTA [Concomitant]
     Indication: DENTAL CARE

REACTIONS (1)
  - Toxic epidermal necrolysis [Fatal]
